FAERS Safety Report 23241248 (Version 2)
Quarter: 2024Q1

REPORT INFORMATION
  Report Type: Spontaneous
  Country: CA (occurrence: CA)
  Receive Date: 20231129
  Receipt Date: 20240125
  Transmission Date: 20240410
  Serious: Yes (Other)
  Sender: FDA-Public Use
  Company Number: CA-PFIZER INC-202300400316

PATIENT
  Age: 74 Year
  Sex: Male

DRUGS (1)
  1. RUXIENCE [Suspect]
     Active Substance: RITUXIMAB-PVVR
     Indication: Granulomatosis with polyangiitis
     Dosage: 500 MG, EVERY 6 MONTHS
     Route: 042
     Dates: start: 20220107

REACTIONS (2)
  - Nephrolithiasis [Unknown]
  - Bladder spasm [Unknown]

NARRATIVE: CASE EVENT DATE: 20230101
